FAERS Safety Report 8893113 (Version 1)
Quarter: 2012Q4

REPORT INFORMATION
  Report Type: 
  Country: US (occurrence: US)
  Receive Date: 20121107
  Receipt Date: 20121107
  Transmission Date: 20130627
  Serious: No
  Sender: FDA-Public Use
  Company Number: US-AMGEN-USASP2011059595

PATIENT
  Age: 59 Year
  Sex: Male
  Weight: 104.31 kg

DRUGS (5)
  1. ENBREL [Suspect]
     Indication: PRODUCT USED FOR UNKNOWN INDICATION
     Dosage: 50 mg, qwk
     Route: 058
  2. WARFARIN [Concomitant]
     Dosage: 1 mg, UNK
     Route: 048
  3. LASIX                              /00032601/ [Concomitant]
     Dosage: 20 mg, UNK
     Route: 048
  4. LISINOPRIL [Concomitant]
     Dosage: 10 mg, UNK
     Route: 048
  5. ACID REDUCER [Concomitant]
     Dosage: 10 mg, UNK
     Route: 048

REACTIONS (1)
  - Injection site pruritus [Unknown]
